FAERS Safety Report 10625946 (Version 1)
Quarter: 2014Q4

REPORT INFORMATION
  Report Type: Spontaneous
  Country: JP (occurrence: JP)
  Receive Date: 20141204
  Receipt Date: 20141204
  Transmission Date: 20150529
  Serious: Yes (Other)
  Sender: FDA-Public Use
  Company Number: JP-JNJFOC-20141105446

PATIENT
  Age: 82 Year
  Sex: Female
  Weight: 50 kg

DRUGS (7)
  1. REMINYL [Suspect]
     Active Substance: GALANTAMINE
     Indication: DEMENTIA ALZHEIMER^S TYPE
     Route: 048
     Dates: start: 20140825, end: 20140921
  2. REMINYL [Suspect]
     Active Substance: GALANTAMINE
     Indication: DEMENTIA ALZHEIMER^S TYPE
     Route: 048
     Dates: start: 20141020, end: 201410
  3. WARFARIN POTASSIUM [Interacting]
     Active Substance: WARFARIN POTASSIUM
     Indication: HEART VALVE OPERATION
     Route: 048
  4. RENIVACE [Concomitant]
     Active Substance: ENALAPRIL
     Indication: HEART VALVE OPERATION
     Route: 048
  5. REMINYL [Suspect]
     Active Substance: GALANTAMINE
     Indication: DEMENTIA ALZHEIMER^S TYPE
     Route: 048
     Dates: start: 20140922, end: 201410
  6. LASIX [Concomitant]
     Active Substance: FUROSEMIDE
     Indication: HEART VALVE OPERATION
     Route: 048
  7. HALCION [Concomitant]
     Active Substance: TRIAZOLAM
     Indication: INSOMNIA
     Route: 048

REACTIONS (1)
  - Drug interaction [Recovered/Resolved]

NARRATIVE: CASE EVENT DATE: 201410
